FAERS Safety Report 7508632-9 (Version None)
Quarter: 2011Q2

REPORT INFORMATION
  Report Type: 
  Country: None (occurrence: None)
  Receive Date: 20110527
  Receipt Date: 20101213
  Transmission Date: 20111010
  Serious: No
  Sender: FDA-Public Use
  Company Number: A0769521A

PATIENT
  Age: 79 Year
  Sex: Male

DRUGS (2)
  1. LOVASTATIN [Concomitant]
  2. VENTOLIN [Suspect]
     Indication: BRONCHOSPASM
     Route: 055
     Dates: start: 20090216

REACTIONS (2)
  - OVERDOSE [None]
  - COUGH [None]
